FAERS Safety Report 10460416 (Version 4)
Quarter: 2015Q1

REPORT INFORMATION
  Report Type: Spontaneous
  Country: CA (occurrence: CA)
  Receive Date: 20140917
  Receipt Date: 20150226
  Transmission Date: 20150720
  Serious: Yes (Other)
  Sender: FDA-Public Use
  Company Number: CA-AMGEN-CANSP2014040458

PATIENT
  Age: 43 Year
  Sex: Male
  Weight: 65.76 kg

DRUGS (2)
  1. ENBREL [Suspect]
     Active Substance: ETANERCEPT
     Indication: ANKYLOSING SPONDYLITIS
     Dosage: 50 MG, QWK
     Route: 058
     Dates: start: 20061117
  2. CELEBREX [Concomitant]
     Active Substance: CELECOXIB
     Dosage: UNK

REACTIONS (7)
  - Pruritus [Unknown]
  - Neuropathy peripheral [Recovering/Resolving]
  - Paraesthesia [Unknown]
  - Uveitis [Recovered/Resolved]
  - Demyelination [Unknown]
  - Hypoaesthesia [Unknown]
  - Tinel^s sign [Unknown]
